FAERS Safety Report 9893603 (Version 2)
Quarter: 2014Q1

REPORT INFORMATION
  Report Type: Spontaneous
  Country: US (occurrence: US)
  Receive Date: 20140213
  Receipt Date: 20140306
  Transmission Date: 20141002
  Serious: Yes (Other)
  Sender: FDA-Public Use
  Company Number: US-FRI-1000054076

PATIENT
  Age: 39 Year
  Sex: Female

DRUGS (2)
  1. VIIBRYD [Suspect]
     Indication: DEPRESSION
     Dosage: 10 MG
     Dates: start: 20140116, end: 20140122
  2. VIIBRYD [Suspect]
     Indication: DEPRESSION
     Dosage: 20 MG
     Dates: start: 20140123, end: 20140129

REACTIONS (2)
  - Suicidal ideation [Recovered/Resolved]
  - Muscle twitching [Recovered/Resolved]
